FAERS Safety Report 8462092-2 (Version None)
Quarter: 2012Q2

REPORT INFORMATION
  Report Type: 
  Country: None (occurrence: None)
  Receive Date: 20120625
  Receipt Date: 20120615
  Transmission Date: 20120825
  Serious: Yes (Other)
  Sender: FDA-Public Use
  Company Number: CA-JNJFOC-20120601982

PATIENT
  Sex: Female
  Weight: 58 kg

DRUGS (3)
  1. LIPITOR [Concomitant]
     Dosage: FOR APPROXIMATELY 10 YEARS
     Route: 065
  2. BENADRYL [Concomitant]
     Indication: PREMEDICATION
     Route: 065
  3. REMICADE [Suspect]
     Indication: CROHN'S DISEASE
     Dosage: 52 WEEKS
     Route: 042
     Dates: start: 20110721

REACTIONS (3)
  - FALL [None]
  - PAIN [None]
  - RIB FRACTURE [None]
